FAERS Safety Report 8247510-7 (Version None)
Quarter: 2012Q1

REPORT INFORMATION
  Report Type: 
  Country: None (occurrence: None)
  Receive Date: 20120330
  Receipt Date: 20120320
  Transmission Date: 20120608
  Serious: Yes (Hospitalization, Other)
  Sender: FDA-Public Use
  Company Number: BR-ABBOTT-09P-020-0603194-00

PATIENT
  Sex: Male
  Weight: 82 kg

DRUGS (7)
  1. NORVASC [Concomitant]
     Indication: HYPERTENSION
     Dates: start: 20060101
  2. PIASCLEDINE [Concomitant]
     Indication: BONE PAIN
     Dates: start: 20080101
  3. HUMIRA [Suspect]
     Indication: RHEUMATOID ARTHRITIS
     Route: 058
     Dates: start: 20090301
  4. CONDROFLEX [Concomitant]
     Indication: BONE PAIN
     Dosage: DAILY DOSE: 1 SACHET
     Dates: start: 20080101
  5. COZAAR [Concomitant]
     Indication: BLOOD PRESSURE
     Dates: start: 20060101
  6. PROZAC [Concomitant]
     Indication: PRODUCT USED FOR UNKNOWN INDICATION
     Dates: start: 20111001
  7. STAVIGILE [Concomitant]
     Indication: PRODUCT USED FOR UNKNOWN INDICATION
     Dates: start: 20111101

REACTIONS (7)
  - HYDROCEPHALUS [None]
  - BLOOD PRESSURE DECREASED [None]
  - MEMORY IMPAIRMENT [None]
  - HEAD INJURY [None]
  - SYNCOPE [None]
  - FALL [None]
  - WEIGHT DECREASED [None]
